FAERS Safety Report 4403016-4 (Version None)
Quarter: 2004Q3

REPORT INFORMATION
  Report Type: 
  Country: None (occurrence: None)
  Receive Date: 20040715
  Receipt Date: 20040701
  Transmission Date: 20050211
  Serious: Yes (Other)
  Sender: FDA-Public Use
  Company Number: S04-USA-04018-01

PATIENT
  Age: 42 Year
  Sex: Male
  Weight: 72.5755 kg

DRUGS (10)
  1. LEXAPRO [Suspect]
     Indication: DEPRESSION
     Dosage: 10 MG QD PO
     Route: 048
     Dates: start: 20010101, end: 20040705
  2. LOTREL [Suspect]
     Indication: HYPERTENSION
     Dates: start: 20030801
  3. CLONIDINE HCL [Suspect]
     Indication: HYPERTENSION
     Dosage: 0.2 MG BID
     Dates: start: 20030901
  4. AMILORIDE W/HYDROCHLOROTHIAZIDE [Suspect]
     Indication: HYPERTENSION
     Dates: start: 20031001
  5. PERCOCET [Suspect]
     Indication: PAIN
     Dates: start: 20020101
  6. WELLBUTRIN SR [Suspect]
     Indication: DEPRESSION
     Dosage: 150 MG
     Dates: start: 20040401, end: 20040705
  7. TRAZODONE HCL [Concomitant]
  8. NEXIUM [Concomitant]
  9. CARISOPRODOL [Concomitant]
  10. BEXTRA [Concomitant]

REACTIONS (10)
  - ALOPECIA [None]
  - ARTHRALGIA [None]
  - ERECTILE DYSFUNCTION [None]
  - EXOSTOSIS [None]
  - FRACTURE [None]
  - HYPERTENSION [None]
  - JOINT DISLOCATION [None]
  - LIMB INJURY [None]
  - NAUSEA [None]
  - SOMNOLENCE [None]
